FAERS Safety Report 8544846 (Version 3)
Quarter: 2012Q4

REPORT INFORMATION
  Report Type: 
  Country: JP (occurrence: JP)
  Receive Date: 20120503
  Receipt Date: 20120904
  Transmission Date: 20130627
  Serious: Yes (Other)
  Sender: FDA-Public Use
  Company Number: JP-PFIZER INC-2012101843

PATIENT
  Age: 56 Year
  Sex: Female

DRUGS (18)
  1. METHOTREXATE SODIUM [Suspect]
     Indication: RHEUMATOID ARTHRITIS
     Dosage: UNK
     Route: 048
     Dates: start: 200903, end: 20100608
  2. SULFASALAZINE [Suspect]
     Dosage: UNK
     Dates: start: 20100609, end: 20100726
  3. SULFASALAZINE [Suspect]
     Dosage: UNK
     Dates: start: 20100814, end: 201008
  4. RIFAMPICIN [Suspect]
     Indication: PULMONARY TUBERCULOSIS
     Dosage: UNK
     Dates: start: 20100604, end: 20100718
  5. RIFAMPICIN [Suspect]
     Dosage: UNK
     Dates: start: 20100803, end: 201008
  6. LEVOFLOXACIN [Suspect]
     Indication: PULMONARY TUBERCULOSIS
     Dosage: UNK
     Dates: start: 20100604, end: 20100718
  7. LEVOFLOXACIN [Suspect]
     Dosage: UNK
     Dates: start: 201008
  8. LEVOFLOXACIN [Suspect]
     Dosage: UNK
     Dates: start: 201010, end: 20101215
  9. ETHAMBUTOL [Suspect]
     Indication: PULMONARY TUBERCULOSIS
     Dosage: UNK
     Dates: start: 20100604, end: 20100718
  10. ETHAMBUTOL [Suspect]
     Dosage: UNK
     Dates: start: 201008
  11. ETHAMBUTOL [Suspect]
     Dosage: UNK
     Dates: start: 201010, end: 20101215
  12. STREPTOMYCIN [Suspect]
     Indication: PULMONARY TUBERCULOSIS
     Dosage: UNK
     Dates: start: 20100604, end: 20100718
  13. STREPTOMYCIN [Suspect]
     Dosage: UNK
     Dates: start: 20100803, end: 201008
  14. STREPTOMYCIN [Suspect]
     Dosage: UNK
     Dates: start: 201008
  15. STREPTOMYCIN [Suspect]
     Dosage: UNK
     Dates: start: 201010, end: 201010
  16. ISONIAZID [Concomitant]
     Indication: PULMONARY TUBERCULOSIS
     Dosage: UNK
     Dates: start: 20101012, end: 20101215
  17. PREDNISOLONE [Concomitant]
     Indication: RHEUMATOID ARTHRITIS
     Dosage: 4 mg, UNK
     Route: 048
     Dates: start: 200903, end: 20100727
  18. PREDNISOLONE [Concomitant]
     Dosage: 25 mg, 1x/day
     Dates: start: 20100728

REACTIONS (8)
  - Pulmonary tuberculosis [Unknown]
  - Interstitial lung disease [Unknown]
  - Drug reaction with eosinophilia and systemic symptoms [Unknown]
  - Hepatic function abnormal [Unknown]
  - Rash [Recovered/Resolved]
  - Pyrexia [Recovered/Resolved]
  - Human herpes virus 6 serology [Unknown]
  - Alopecia [Recovered/Resolved]
